FAERS Safety Report 6746950-2 (Version None)
Quarter: 2010Q2

REPORT INFORMATION
  Report Type: 
  Country: None (occurrence: None)
  Receive Date: 20100528
  Receipt Date: 20091117
  Transmission Date: 20101027
  Serious: No
  Sender: FDA-Public Use
  Company Number: US-ASTRAZENECA-2009SE31494

PATIENT

DRUGS (6)
  1. PRILOSEC OTC [Suspect]
     Route: 048
  2. DEPAKOTE [Concomitant]
  3. VITAMINS [Concomitant]
  4. MELATONIN [Concomitant]
  5. HYDROCHLOROTH [Concomitant]
  6. SUPPLEMENTS [Concomitant]

REACTIONS (2)
  - ALOPECIA [None]
  - INAPPROPRIATE SCHEDULE OF DRUG ADMINISTRATION [None]
